FAERS Safety Report 13958745 (Version 9)
Quarter: 2019Q3

REPORT INFORMATION
  Report Type: Report from Study
  Country: CA (occurrence: CA)
  Receive Date: 20170911
  Receipt Date: 20190926
  Transmission Date: 20191004
  Serious: Yes (Hospitalization, Other)
  Sender: FDA-Public Use
  Company Number: CA-INCYTE CORPORATION-2016IN007709

PATIENT

DRUGS (2)
  1. JAKAVI [Suspect]
     Active Substance: RUXOLITINIB
     Indication: MYELOFIBROSIS
     Dosage: 5 MG, BID
     Route: 048
     Dates: start: 20161107
  2. JAKAVI [Suspect]
     Active Substance: RUXOLITINIB
     Dosage: 5 MG, BID
     Route: 048
     Dates: start: 20170109

REACTIONS (15)
  - Increased appetite [Unknown]
  - Dizziness [Unknown]
  - Haemoglobin decreased [Unknown]
  - Contusion [Unknown]
  - Fall [Unknown]
  - Aphonia [Recovering/Resolving]
  - Hand fracture [Unknown]
  - Headache [Unknown]
  - Malaise [Unknown]
  - Influenza [Unknown]
  - Full blood count decreased [Unknown]
  - Platelet count decreased [Unknown]
  - Pneumonia [Unknown]
  - Epistaxis [Unknown]
  - Cardiac disorder [Unknown]

NARRATIVE: CASE EVENT DATE: 201611
